FAERS Safety Report 15903955 (Version 2)
Quarter: 2019Q2

REPORT INFORMATION
  Report Type: Report from Study
  Country: None (occurrence: PR)
  Receive Date: 20190204
  Receipt Date: 20190408
  Transmission Date: 20190711
  Serious: Yes (Other)
  Sender: FDA-Public Use
  Company Number: PR-ABBVIE-19K-131-2640805-00

PATIENT
  Age: 38 Year
  Sex: Female

DRUGS (14)
  1. HUMIRA [Suspect]
     Active Substance: ADALIMUMAB
     Indication: RHEUMATOID ARTHRITIS
     Route: 058
     Dates: start: 201805
  2. FOLIC ACID. [Concomitant]
     Active Substance: FOLIC ACID
     Indication: RHEUMATOID ARTHRITIS
  3. SINGULAIR [Concomitant]
     Active Substance: MONTELUKAST SODIUM
     Indication: ASTHMA
  4. ZANAFLEX [Concomitant]
     Active Substance: TIZANIDINE HYDROCHLORIDE
     Indication: MUSCLE RELAXANT THERAPY
  5. SULINDAC. [Concomitant]
     Active Substance: SULINDAC
     Indication: ANTIINFLAMMATORY THERAPY
  6. CYMBALTA [Concomitant]
     Active Substance: DULOXETINE HYDROCHLORIDE
     Indication: FIBROMYALGIA
  7. ATACAND [Concomitant]
     Active Substance: CANDESARTAN CILEXETIL
     Indication: HYPERTENSION
  8. DEPAKOTE [Concomitant]
     Active Substance: DIVALPROEX SODIUM
     Indication: MIGRAINE
  9. MELATONIN [Concomitant]
     Active Substance: MELATONIN
     Indication: HEADACHE
  10. AZULFIDINE [Concomitant]
     Active Substance: SULFASALAZINE
     Indication: RHEUMATOID ARTHRITIS
  11. CHAMOMILE [Concomitant]
     Active Substance: CHAMOMILE
     Indication: HEADACHE
  12. METHOTREXATE. [Concomitant]
     Active Substance: METHOTREXATE
     Indication: RHEUMATOID ARTHRITIS
  13. VITAMIN C [Concomitant]
     Active Substance: ASCORBIC ACID
     Indication: IMMUNE ENHANCEMENT THERAPY
  14. LEVOTEC [Concomitant]
     Indication: LUNG DISORDER

REACTIONS (6)
  - Immunodeficiency [Not Recovered/Not Resolved]
  - Head injury [Recovering/Resolving]
  - Malaise [Recovered/Resolved]
  - Precancerous mucosal lesion [Recovered/Resolved]
  - Cerebral haemorrhage [Recovering/Resolving]
  - Anaesthetic complication [Recovered/Resolved]

NARRATIVE: CASE EVENT DATE: 201812
